FAERS Safety Report 26114651 (Version 1)
Quarter: 2025Q4

REPORT INFORMATION
  Report Type: Spontaneous
  Country: US (occurrence: US)
  Receive Date: 20251202
  Receipt Date: 20251202
  Transmission Date: 20260118
  Serious: Yes (Death, Hospitalization, Other)
  Sender: AMNEAL
  Company Number: US-AMNEAL PHARMACEUTICALS-2025-AMRX-04627

PATIENT
  Age: 84 Year
  Sex: Female

DRUGS (1)
  1. ALENDRONATE SODIUM [Suspect]
     Active Substance: ALENDRONATE SODIUM
     Indication: Product used for unknown indication
     Dosage: APPROXIMATELY 420 MG
     Route: 048

REACTIONS (6)
  - Sepsis [Fatal]
  - Intestinal pseudo-obstruction [Unknown]
  - Acute kidney injury [Unknown]
  - Intestinal ischaemia [Unknown]
  - Escherichia bacteraemia [Unknown]
  - Accidental overdose [Unknown]
